FAERS Safety Report 18549163 (Version 2)
Quarter: 2020Q4

REPORT INFORMATION
  Report Type: Report from Study
  Country: None (occurrence: SG)
  Receive Date: 20201126
  Receipt Date: 20201219
  Transmission Date: 20210114
  Serious: Yes (Hospitalization, Other)
  Sender: FDA-Public Use
  Company Number: SG-ABBVIE-20K-141-3663916-00

PATIENT
  Age: 51 Year
  Sex: Female

DRUGS (1)
  1. HUMIRA [Suspect]
     Active Substance: ADALIMUMAB
     Indication: RHEUMATOID ARTHRITIS
     Route: 058
     Dates: start: 20200206, end: 20200524

REACTIONS (9)
  - Chills [Recovering/Resolving]
  - Fat tissue increased [Recovering/Resolving]
  - Pruritus [Recovering/Resolving]
  - Musculoskeletal pain [Recovering/Resolving]
  - Intestinal mass [Recovering/Resolving]
  - Erythema [Recovering/Resolving]
  - Tuberculous pleurisy [Recovered/Resolved]
  - Tendonitis [Recovered/Resolved]
  - Burning sensation [Recovering/Resolving]

NARRATIVE: CASE EVENT DATE: 202005
